FAERS Safety Report 17113750 (Version 2)
Quarter: 2021Q1

REPORT INFORMATION
  Report Type: Spontaneous
  Country: JP (occurrence: JP)
  Receive Date: 20191205
  Receipt Date: 20210223
  Transmission Date: 20210419
  Serious: Yes (Hospitalization)
  Sender: FDA-Public Use
  Company Number: JP-BRISTOL-MYERS SQUIBB COMPANY-BMS-2019-106661

PATIENT
  Age: 70 Year
  Sex: Female

DRUGS (2)
  1. OPDIVO [Suspect]
     Active Substance: NIVOLUMAB
     Indication: METASTATIC RENAL CELL CARCINOMA
     Dosage: 240 MILLIGRAM, Q3WK
     Route: 041
     Dates: start: 20190919, end: 20191010
  2. YERVOY [Suspect]
     Active Substance: IPILIMUMAB
     Indication: METASTATIC RENAL CELL CARCINOMA
     Dosage: 1 MILLIGRAM/KILOGRAM, Q3WK
     Route: 041
     Dates: start: 20190919, end: 20191010

REACTIONS (2)
  - Rash [Recovered/Resolved]
  - Liver disorder [Recovering/Resolving]

NARRATIVE: CASE EVENT DATE: 20191101
